FAERS Safety Report 7563827-3 (Version None)
Quarter: 2011Q2

REPORT INFORMATION
  Report Type: 
  Country: None (occurrence: None)
  Receive Date: 20110622
  Receipt Date: 20110614
  Transmission Date: 20111010
  Serious: Yes (Hospitalization)
  Sender: FDA-Public Use
  Company Number: FR-ALLERGAN-1108017US

PATIENT
  Age: 47 Year
  Sex: Female

DRUGS (1)
  1. LUMIGAN [Suspect]
     Indication: PRODUCT USED FOR UNKNOWN INDICATION
     Dosage: UNK
     Dates: start: 20101224, end: 20110124

REACTIONS (1)
  - VENTRICULAR EXTRASYSTOLES [None]
